FAERS Safety Report 8000610-9 (Version None)
Quarter: 2011Q4

REPORT INFORMATION
  Report Type: 
  Country: None (occurrence: None)
  Receive Date: 20111216
  Receipt Date: 20111208
  Transmission Date: 20120403
  Serious: Yes (Hospitalization, Other)
  Sender: FDA-Public Use
  Company Number: 2011SP057296

PATIENT
  Age: 39 Year
  Sex: Female

DRUGS (2)
  1. CERAZETTE (DESOGESTREL /00754001/) [Suspect]
     Indication: CONTRACEPTION
     Dosage: 75 MCG
     Dates: start: 20110101, end: 20111012
  2. ASPIRIN [Concomitant]

REACTIONS (6)
  - TRANSIENT ISCHAEMIC ATTACK [None]
  - DEMYELINATION [None]
  - MYOCARDIAL INFARCTION [None]
  - CORONARY ARTERY OCCLUSION [None]
  - VENTRICULAR EXTRASYSTOLES [None]
  - CORONARY ARTERY STENOSIS [None]
